FAERS Safety Report 6776382-2 (Version None)
Quarter: 2010Q2

REPORT INFORMATION
  Report Type: 
  Country: None (occurrence: None)
  Receive Date: 20100615
  Receipt Date: 20100607
  Transmission Date: 20101027
  Serious: Yes (Congenital Anomaly)
  Sender: FDA-Public Use
  Company Number: 2010JP001479

PATIENT
  Age: 84 Year
  Sex: Male

DRUGS (18)
  1. PROGRAF [Suspect]
     Indication: RHEUMATOID ARTHRITIS
     Dosage: 1 MG , UNKNOWN/D ORAL
     Route: 048
     Dates: start: 20091019, end: 20100301
  2. PROGRAF [Suspect]
     Indication: RHEUMATOID ARTHRITIS
     Dosage: 1 MG , UNKNOWN/D ORAL
     Route: 048
     Dates: start: 20100405
  3. DIOVAN [Suspect]
     Indication: HYPERTENSION
     Dosage: 40 MG UID/QD, ORAL
     Route: 048
     Dates: end: 20100426
  4. NORVASC [Suspect]
     Indication: HYPERTENSION
     Dosage: 5 MG, UD/QD. ORAL
     Route: 048
     Dates: end: 20100425
  5. FLUITRAN (TRICHLORMETHIAZE) [Suspect]
     Indication: HYPERTENSION
     Dosage: UNK,ORAL  0.5 MG, UID/QD, ORAL
     Route: 048
     Dates: end: 20100425
  6. FLUITRAN (TRICHLORMETHIAZE) [Suspect]
     Indication: HYPERTENSION
     Dosage: UNK,ORAL  0.5 MG, UID/QD, ORAL
     Route: 048
     Dates: start: 20100426
  7. METHOTREXATE [Concomitant]
  8. URSO 250 [Concomitant]
  9. VERAPAMIL [Concomitant]
  10. EURODIN (ESTAZOLAM) [Suspect]
  11. MUCOSTA [Suspect]
  12. PREDNISOLONE [Concomitant]
  13. LANSOPRAZOLE [Concomitant]
  14. RHEUMATREX [Concomitant]
  15. FOLIC ACID [Concomitant]
  16. ASPIRIN [Concomitant]
  17. LOXONIN (LOXOPROFEN) [Suspect]
  18. OPALMON [Suspect]

REACTIONS (2)
  - CAROTID ARTERY DISEASE [None]
  - VESTIBULAR DISORDER [None]
